FAERS Safety Report 25259149 (Version 2)
Quarter: 2025Q2

REPORT INFORMATION
  Report Type: Report from Study
  Country: US (occurrence: US)
  Receive Date: 20250501
  Receipt Date: 20250617
  Transmission Date: 20250716
  Serious: Yes (Other)
  Sender: ABBVIE
  Company Number: US-ABBVIE-6194564

PATIENT
  Age: 71 Year
  Sex: Male

DRUGS (2)
  1. CREON [Suspect]
     Active Substance: PANCRELIPASE AMYLASE\PANCRELIPASE LIPASE\PANCRELIPASE PROTEASE
     Indication: Pancreatic failure
     Route: 048
     Dates: start: 20250215
  2. CREON [Suspect]
     Active Substance: PANCRELIPASE AMYLASE\PANCRELIPASE LIPASE\PANCRELIPASE PROTEASE
     Indication: Pancreatic failure
     Route: 048

REACTIONS (9)
  - Cardiac dysfunction [Unknown]
  - Pain [Unknown]
  - Night sweats [Unknown]
  - Nasopharyngitis [Recovered/Resolved]
  - Unevaluable event [Unknown]
  - Chills [Unknown]
  - Malaise [Unknown]
  - Abdominal discomfort [Unknown]
  - Appetite disorder [Unknown]

NARRATIVE: CASE EVENT DATE: 20250101
